FAERS Safety Report 21362716 (Version 2)
Quarter: 2022Q4

REPORT INFORMATION
  Report Type: Report from Study
  Country: KM (occurrence: KM)
  Receive Date: 20220922
  Receipt Date: 20221017
  Transmission Date: 20230113
  Serious: Yes (Hospitalization)
  Sender: FDA-Public Use
  Company Number: KM-JNJFOC-20220939210

PATIENT
  Age: 43 Year
  Sex: Female
  Weight: 68 kg

DRUGS (2)
  1. BEDAQUILINE [Suspect]
     Active Substance: BEDAQUILINE
     Indication: Prophylaxis
     Route: 048
     Dates: start: 20220802, end: 20220802
  2. RIFAMPIN [Suspect]
     Active Substance: RIFAMPIN
     Indication: Prophylaxis
     Route: 065
     Dates: start: 20220802, end: 20220802

REACTIONS (1)
  - Malaise [Recovered/Resolved]

NARRATIVE: CASE EVENT DATE: 20220802
